FAERS Safety Report 24986167 (Version 1)
Quarter: 2025Q1

REPORT INFORMATION
  Report Type: Spontaneous
  Country: JP (occurrence: JP)
  Receive Date: 20250219
  Receipt Date: 20250219
  Transmission Date: 20250408
  Serious: Yes (Other)
  Sender: PFIZER
  Company Number: JP-PFIZER INC-202500038103

PATIENT

DRUGS (1)
  1. ELREXFIO [Suspect]
     Active Substance: ELRANATAMAB-BCMM
     Route: 058

REACTIONS (1)
  - Cytomegalovirus infection reactivation [Unknown]
